FAERS Safety Report 4795726-4 (Version None)
Quarter: 2005Q3

REPORT INFORMATION
  Report Type: 
  Country: None (occurrence: None)
  Receive Date: 20050916
  Receipt Date: 20050707
  Transmission Date: 20060218
  Serious: Yes (Other)
  Sender: FDA-Public Use
  Company Number: NSADSS2002006200

PATIENT
  Age: 37 Year
  Sex: Male
  Weight: 104.3273 kg

DRUGS (7)
  1. TOPAMAX [Suspect]
     Indication: HYPERHIDROSIS
     Dosage: 100 MG, ORAL; 200 MG, ORAL
     Route: 048
     Dates: end: 20020114
  2. TOPAMAX [Suspect]
     Indication: HYPERHIDROSIS
     Dosage: 100 MG, ORAL; 200 MG, ORAL
     Route: 048
     Dates: start: 20020101
  3. ASPIRIN [Concomitant]
  4. MULTI-VITAMINS [Concomitant]
  5. VICODIN [Concomitant]
  6. VALIUM [Concomitant]
  7. HYDROCODONE [Concomitant]

REACTIONS (8)
  - AMNESIA [None]
  - ANHIDROSIS [None]
  - BODY TEMPERATURE INCREASED [None]
  - CONVULSION [None]
  - HEADACHE [None]
  - INSOMNIA [None]
  - THINKING ABNORMAL [None]
  - WEIGHT DECREASED [None]
